FAERS Safety Report 5306148-1 (Version None)
Quarter: 2007Q2

REPORT INFORMATION
  Report Type: 
  Country: None (occurrence: None)
  Receive Date: 20070417
  Receipt Date: 20070405
  Transmission Date: 20071010
  Serious: Yes (Hospitalization)
  Sender: FDA-Public Use
  Company Number: CERZ-11601

PATIENT
  Age: 19 Year
  Sex: Female
  Weight: 57 kg

DRUGS (1)
  1. CEREZYME [Suspect]
     Indication: GAUCHER'S DISEASE
     Dosage: 800 UNITS Q2WKS IV
     Route: 042
     Dates: start: 20060712

REACTIONS (4)
  - BACK PAIN [None]
  - COUGH [None]
  - THROAT TIGHTNESS [None]
  - WHEEZING [None]
